FAERS Safety Report 16018983 (Version 1)
Quarter: 2019Q1

REPORT INFORMATION
  Report Type: Spontaneous
  Country: IT (occurrence: IT)
  Receive Date: 20190228
  Receipt Date: 20190228
  Transmission Date: 20190418
  Serious: Yes (Hospitalization)
  Sender: FDA-Public Use
  Company Number: IT-TEVA-2019-IT-1016429

PATIENT
  Age: 59 Year
  Sex: Male

DRUGS (1)
  1. TRAMADOL HYDROCHLORIDE. [Suspect]
     Active Substance: TRAMADOL HYDROCHLORIDE
     Indication: DRUG ABUSE
     Route: 048
     Dates: start: 20190206, end: 20190206

REACTIONS (6)
  - Drug abuse [Unknown]
  - Tachypnoea [Unknown]
  - Alcohol abuse [Unknown]
  - Miosis [Unknown]
  - Anxiety [Unknown]
  - Dysphagia [Unknown]

NARRATIVE: CASE EVENT DATE: 20190206
